FAERS Safety Report 21964002 (Version 1)
Quarter: 2023Q1

REPORT INFORMATION
  Report Type: Spontaneous
  Country: FR (occurrence: FR)
  Receive Date: 20230207
  Receipt Date: 20230207
  Transmission Date: 20230418
  Serious: Yes (Hospitalization)
  Sender: FDA-Public Use
  Company Number: None

PATIENT
  Age: 79 Year
  Sex: Male

DRUGS (12)
  1. PROPOFOL [Suspect]
     Active Substance: PROPOFOL
     Indication: Prostatic operation
     Dosage: 1 DOSAGE FORM TOTALLY
     Route: 042
     Dates: start: 20221108, end: 20221108
  2. SUFENTANIL [Suspect]
     Active Substance: SUFENTANIL
     Indication: Prostatic operation
     Dosage: 1 DOSAGE FORM
     Route: 042
     Dates: start: 20221108, end: 20221108
  3. KETAMINE [Suspect]
     Active Substance: KETAMINE
     Indication: Prostatic operation
     Dosage: 1 DF TOTALLY
     Route: 042
     Dates: start: 20221108, end: 20221108
  4. ROCURONIUM BROMIDE [Suspect]
     Active Substance: ROCURONIUM BROMIDE
     Indication: Prostatic operation
     Dosage: 1 DF TOTALLY
     Route: 042
     Dates: start: 20221108, end: 20221108
  5. TOUJEO 300 units/ml, solution for injection in pre-filled pen [Concomitant]
     Indication: Insulin-requiring type 2 diabetes mellitus
  6. TRULICITY 1,5 mg solution for injection in pre-filled syringe [Concomitant]
     Indication: Insulin-requiring type 2 diabetes mellitus
  7. LIPTRUZET 10 mg/80 mg, film coated tablet [Concomitant]
     Indication: Dyslipidaemia
  8. SOTALOL HYDROCHLORIDE [Concomitant]
     Active Substance: SOTALOL HYDROCHLORIDE
     Indication: Hypertension
  9. ELIQUIS 2,5 mg film coated tablet [Concomitant]
     Indication: Coronary artery bypass
  10. FORXIGA 10 mg film coated tablet [Concomitant]
     Indication: Insulin-requiring type 2 diabetes mellitus
  11. KARDEGIC 75 mg powder for oral solution [Concomitant]
     Indication: Coronary artery bypass
  12. TAMSULOSIN HYDROCHLORIDE [Concomitant]
     Active Substance: TAMSULOSIN HYDROCHLORIDE
     Indication: Benign prostatic hyperplasia

REACTIONS (1)
  - Anaphylactic reaction [Recovered/Resolved]

NARRATIVE: CASE EVENT DATE: 20221108
